FAERS Safety Report 8366432-4 (Version None)
Quarter: 2012Q1

REPORT INFORMATION
  Report Type: 
  Country: None (occurrence: None)
  Receive Date: 20120323
  Receipt Date: 20110412
  Transmission Date: 20120608
  Serious: Yes (Other)
  Sender: FDA-Public Use
  Company Number: 163-21880-11041709

PATIENT
  Age: 78 Year
  Sex: Male

DRUGS (2)
  1. REVLIMID [Suspect]
     Indication: MYELODYSPLASTIC SYNDROME
     Dosage: 5 MG, 1 IN 1 D, PO
     Route: 048
     Dates: start: 20101001
  2. ASPIRIN [Concomitant]

REACTIONS (4)
  - EPISTAXIS [None]
  - FULL BLOOD COUNT DECREASED [None]
  - BLOOD URINE PRESENT [None]
  - PLATELET COUNT DECREASED [None]
